FAERS Safety Report 4521914-8 (Version None)
Quarter: 2004Q4

REPORT INFORMATION
  Report Type: 
  Country: None (occurrence: None)
  Receive Date: 20041207
  Receipt Date: 20041207
  Transmission Date: 20050328
  Serious: Yes (Life-Threatening)
  Sender: FDA-Public Use
  Company Number: None

PATIENT
  Sex: Male

DRUGS (8)
  1. PULMICORT RESPULES [Suspect]
     Indication: ASTHMA
     Dosage: 0.5 MG BY NEBULIZER
     Route: 055
     Dates: start: 20041201
  2. PULMICORT RESPULES [Suspect]
     Indication: BRONCHITIS
     Dosage: 0.5 MG BY NEBULIZER
     Route: 055
     Dates: start: 20041201
  3. ALBUTEROL [Concomitant]
  4. ENTEX PSE [Concomitant]
  5. RHINOCORT [Concomitant]
  6. SINGULAIR [Concomitant]
  7. NEXIUM [Concomitant]
  8. BIAXIN XL [Concomitant]

REACTIONS (2)
  - ANAPHYLACTOID REACTION [None]
  - BRONCHOSPASM [None]
